FAERS Safety Report 4476602-3 (Version None)
Quarter: 2004Q4

REPORT INFORMATION
  Report Type: 
  Country: None (occurrence: None)
  Receive Date: 20041013
  Receipt Date: 20040929
  Transmission Date: 20050328
  Serious: Yes (Hospitalization, Other)
  Sender: FDA-Public Use
  Company Number: US_010361194

PATIENT
  Age: 76 Year
  Sex: Female
  Weight: 71 kg

DRUGS (2)
  1. HUMULIN R [Suspect]
     Indication: DIABETES MELLITUS
     Dates: start: 19820101
  2. HUMULIN N [Suspect]
     Indication: DIABETES MELLITUS
     Dosage: 44 U DAY
     Dates: start: 19820101

REACTIONS (8)
  - BARRETT'S OESOPHAGUS [None]
  - BLOOD GLUCOSE INCREASED [None]
  - HYPOACUSIS [None]
  - MACULAR DEGENERATION [None]
  - MUSCULOSKELETAL DISCOMFORT [None]
  - OESOPHAGEAL HAEMORRHAGE [None]
  - STRESS SYMPTOMS [None]
  - VISUAL DISTURBANCE [None]
